FAERS Safety Report 10678866 (Version 1)
Quarter: 2014Q4

REPORT INFORMATION
  Report Type: Spontaneous
  Country: US (occurrence: US)
  Receive Date: 20141229
  Receipt Date: 20141229
  Transmission Date: 20150529
  Serious: No
  Sender: FDA-Public Use
  Company Number: US-PFIZER INC-2014356530

PATIENT
  Age: 63 Year
  Sex: Female
  Weight: 117 kg

DRUGS (22)
  1. LORAZEPAM. [Concomitant]
     Active Substance: LORAZEPAM
  2. DOXYCYCLINE. [Concomitant]
     Active Substance: DOXYCYCLINE
  3. XELJANZ [Suspect]
     Active Substance: TOFACITINIB CITRATE
     Indication: RHEUMATOID ARTHRITIS
     Dosage: 5 MG, 2X/DAY
     Route: 048
     Dates: start: 20140822
  4. SPIRONOLACTONE. [Concomitant]
     Active Substance: SPIRONOLACTONE
  5. NORCO [Concomitant]
     Active Substance: ACETAMINOPHEN\HYDROCODONE BITARTRATE
  6. CRESTOR [Concomitant]
     Active Substance: ROSUVASTATIN CALCIUM
     Indication: BLOOD CHOLESTEROL ABNORMAL
     Dosage: 20 MG, UNK
  7. CLARITIN [Concomitant]
     Active Substance: LORATADINE
  8. CLOBETASOL [Concomitant]
     Active Substance: CLOBETASOL
  9. TUDORZA PRESSAIR [Concomitant]
     Active Substance: ACLIDINIUM BROMIDE
  10. LINZESS [Concomitant]
     Active Substance: LINACLOTIDE
  11. DILTIAZEM [Concomitant]
     Active Substance: DILTIAZEM
  12. ROBAXIN [Concomitant]
     Active Substance: METHOCARBAMOL
  13. TRAMADOL [Concomitant]
     Active Substance: TRAMADOL
  14. KLOR CON [Concomitant]
  15. IODINE [Concomitant]
     Active Substance: IODINE
  16. BETAMETHASONE [Concomitant]
     Active Substance: BETAMETHASONE
  17. SPIRIVA [Concomitant]
     Active Substance: TIOTROPIUM BROMIDE MONOHYDRATE
  18. PENLAC [Concomitant]
     Active Substance: CICLOPIROX
  19. METOLAZONE. [Concomitant]
     Active Substance: METOLAZONE
  20. TAGAMET [Concomitant]
     Active Substance: CIMETIDINE
  21. SINGULAIR [Concomitant]
     Active Substance: MONTELUKAST SODIUM
  22. ALBUTEROL. [Concomitant]
     Active Substance: ALBUTEROL

REACTIONS (5)
  - Onychomycosis [Unknown]
  - Nasopharyngitis [Unknown]
  - Malaise [Unknown]
  - Contusion [Unknown]
  - Blood cholesterol increased [Unknown]

NARRATIVE: CASE EVENT DATE: 201412
